FAERS Safety Report 6310320-1 (Version None)
Quarter: 2009Q3

REPORT INFORMATION
  Report Type: 
  Country: None (occurrence: None)
  Receive Date: 20090811
  Receipt Date: 20090728
  Transmission Date: 20100115
  Serious: Yes (Hospitalization)
  Sender: FDA-Public Use
  Company Number: KV200800135

PATIENT
  Age: 74 Year
  Sex: Female

DRUGS (3)
  1. MORPHINE SULFATE [Suspect]
     Indication: BACK PAIN
     Dosage: 30 MG, BID, ORAL
     Route: 048
     Dates: start: 20080530, end: 20080531
  2. SYNTHROID [Concomitant]
  3. UNSPECIFIED BLOOD PRESSURE MEDICATIONS [Concomitant]

REACTIONS (6)
  - ABNORMAL BEHAVIOUR [None]
  - ANAPHYLACTIC REACTION [None]
  - EYE ROLLING [None]
  - LOSS OF CONSCIOUSNESS [None]
  - OVERDOSE [None]
  - PRODUCT QUALITY ISSUE [None]
